FAERS Safety Report 18984720 (Version 1)
Quarter: 2021Q1

REPORT INFORMATION
  Report Type: Spontaneous
  Country: US (occurrence: US)
  Receive Date: 20210309
  Receipt Date: 20210309
  Transmission Date: 20210420
  Serious: Yes (Hospitalization, Other)
  Sender: FDA-Public Use
  Company Number: US-SA-2021SA077307

PATIENT
  Age: 68 Year
  Sex: Female

DRUGS (1)
  1. DUPIXENT [Suspect]
     Active Substance: DUPILUMAB
     Indication: ASTHMA
     Dosage: 300 MG (PER 2 ML) QOW
     Route: 058
     Dates: start: 20190718

REACTIONS (2)
  - Haematochezia [Unknown]
  - Cataract [Unknown]
